FAERS Safety Report 10903702 (Version 1)
Quarter: 2015Q1

REPORT INFORMATION
  Report Type: Spontaneous
  Country: US (occurrence: None)
  Receive Date: 20150304
  Receipt Date: 20150304
  Transmission Date: 20150721
  Serious: Yes (Death)
  Sender: FDA-Public Use
  Company Number: None

PATIENT
  Age: 55 Year
  Sex: Male

DRUGS (2)
  1. VIREAD [Suspect]
     Active Substance: TENOFOVIR DISOPROXIL FUMARATE
     Indication: PRODUCT USED FOR UNKNOWN INDICATION
     Dosage: ONE TABLET
     Route: 048
     Dates: start: 20131118, end: 20141008
  2. VIREAD [Suspect]
     Active Substance: TENOFOVIR DISOPROXIL FUMARATE
     Indication: NEOPLASM MALIGNANT
     Dosage: ONE TABLET
     Route: 048
     Dates: start: 20131118, end: 20141008

REACTIONS (6)
  - Aspiration [None]
  - Hallucination [None]
  - Blood glucose decreased [None]
  - Ammonia increased [None]
  - Cardiac arrest [None]
  - Vomiting [None]

NARRATIVE: CASE EVENT DATE: 20150120
